FAERS Safety Report 12507237 (Version 1)
Quarter: 2016Q2

REPORT INFORMATION
  Report Type: Spontaneous
  Country: AU (occurrence: AU)
  Receive Date: 20160629
  Receipt Date: 20160629
  Transmission Date: 20160815
  Serious: Yes (Hospitalization)
  Sender: FDA-Public Use
  Company Number: AU-009507513-1606AUS012265

PATIENT
  Age: 57 Year
  Sex: Male

DRUGS (5)
  1. RIBAVIRIN. [Suspect]
     Active Substance: RIBAVIRIN
     Dosage: 600 MG, QAM
     Route: 048
     Dates: start: 201512
  2. TACROLIMUS. [Suspect]
     Active Substance: TACROLIMUS
  3. RIBAVIRIN. [Suspect]
     Active Substance: RIBAVIRIN
     Dosage: 1200 MG IN TOTAL
     Route: 048
  4. VIEKIRA PAK [Suspect]
     Active Substance: DASABUVIR\OMBITASVIR\PARITAPREVIR\RITONAVIR
  5. RIBAVIRIN. [Suspect]
     Active Substance: RIBAVIRIN
     Dosage: 200MG IN THE MORNING, 600MG AT NIGHT
     Route: 048
     Dates: end: 201512

REACTIONS (10)
  - Gastroenteritis cryptosporidial [Unknown]
  - Nausea [Unknown]
  - Drug level increased [Unknown]
  - Tongue ulceration [Unknown]
  - Malaise [Unknown]
  - Mouth ulceration [Unknown]
  - Headache [Unknown]
  - Insomnia [Unknown]
  - Feeling abnormal [Unknown]
  - Decreased immune responsiveness [Unknown]

NARRATIVE: CASE EVENT DATE: 20151128
